FAERS Safety Report 17674034 (Version 1)
Quarter: 2020Q2

REPORT INFORMATION
  Report Type: Spontaneous
  Country: US (occurrence: US)
  Receive Date: 20200415
  Receipt Date: 20200415
  Transmission Date: 20200714
  Serious: Yes (Hospitalization, Other)
  Sender: FDA-Public Use
  Company Number: US-AUROBINDO-AUR-APL-2020-017464

PATIENT
  Sex: Female
  Weight: 69 kg

DRUGS (1)
  1. VANCOMYCIN [Suspect]
     Active Substance: VANCOMYCIN
     Indication: MENINGITIS STREPTOCOCCAL
     Dosage: UNK
     Route: 065

REACTIONS (1)
  - Leukopenia [Recovered/Resolved]
